FAERS Safety Report 14244946 (Version 1)
Quarter: 2017Q4

REPORT INFORMATION
  Report Type: Spontaneous
  Country: US (occurrence: US)
  Receive Date: 20171201
  Receipt Date: 20171201
  Transmission Date: 20180321
  Serious: No
  Sender: FDA-Public Use
  Company Number: PHEH2017US038591

PATIENT
  Sex: Male

DRUGS (3)
  1. SPIRONOLACTONA [Concomitant]
     Indication: ASCITES
     Route: 065
  2. FUROSEMIDE. [Concomitant]
     Active Substance: FUROSEMIDE
     Indication: ASCITES
     Dosage: UNK
     Route: 065
  3. OCTREOTIDE. [Suspect]
     Active Substance: OCTREOTIDE
     Indication: PORTAL HYPERTENSION
     Dosage: UNK
     Route: 042

REACTIONS (5)
  - Tremor [Not Recovered/Not Resolved]
  - Pain [Not Recovered/Not Resolved]
  - Nasopharyngitis [Not Recovered/Not Resolved]
  - Incorrect route of drug administration [Unknown]
  - Arthralgia [Not Recovered/Not Resolved]
